FAERS Safety Report 11078627 (Version 1)
Quarter: 2015Q2

REPORT INFORMATION
  Report Type: Spontaneous
  Country: US (occurrence: None)
  Receive Date: 20150428
  Receipt Date: 20150428
  Transmission Date: 20150821
  Serious: Yes (Hospitalization)
  Sender: FDA-Public Use
  Company Number: FK201501912

PATIENT
  Age: 23 Year
  Sex: Female

DRUGS (3)
  1. CISPLATIN (MANUFACTURER UNKNOWN) (CISPLATIN) (CISPLATIN) [Suspect]
     Active Substance: CISPLATIN
     Indication: OVARIAN SERTOLI-LEYDIG CELL TUMOUR
  2. BLEOMYCIN (BLEOMYCIN) (BLEOMYCIN) [Suspect]
     Active Substance: BLEOMYCIN SULFATE
     Indication: OVARIAN SERTOLI-LEYDIG CELL TUMOUR
  3. ETOPOSIDE (ETOPOSIDE) (ETOPOSIDE) [Suspect]
     Active Substance: ETOPOSIDE
     Indication: OVARIAN SERTOLI-LEYDIG CELL TUMOUR

REACTIONS (6)
  - Bradycardia [None]
  - Malaise [None]
  - Asthenia [None]
  - Dizziness [None]
  - Hypertension [None]
  - Electrocardiogram QT prolonged [None]
